FAERS Safety Report 8964947 (Version 1)
Quarter: 2012Q4

REPORT INFORMATION
  Report Type: Report from Study
  Country: US (occurrence: US)
  Receive Date: 20121213
  Receipt Date: 20121213
  Transmission Date: 20130627
  Serious: Yes (Hospitalization)
  Sender: FDA-Public Use
  Company Number: US-ROCHE-1162927

PATIENT
  Age: 69 Year
  Sex: Female
  Weight: 56.2 kg

DRUGS (10)
  1. TRASTUZUMAB [Suspect]
     Indication: BREAST CANCER
     Dosage: Once every 21 days
     Route: 065
     Dates: start: 20120119, end: 20121118
  2. EVEROLIMUS [Suspect]
     Indication: BREAST CANCER
     Dosage: Every Other Day
     Route: 065
     Dates: start: 20120524, end: 20121128
  3. OMEPRAZOLE [Concomitant]
     Route: 065
     Dates: start: 2011
  4. VENLAFAXINE [Concomitant]
     Route: 065
     Dates: start: 20120119
  5. AROMASIN [Concomitant]
     Route: 065
     Dates: start: 2011
  6. IBUPROFEN [Concomitant]
     Route: 065
     Dates: start: 20120119
  7. AMBIEN [Concomitant]
     Route: 065
     Dates: start: 20120412
  8. AUGMENTIN [Concomitant]
     Route: 065
     Dates: start: 20120614
  9. ZOMETA [Concomitant]
     Route: 065
     Dates: start: 20120301
  10. ZITHROMAX [Concomitant]
     Route: 065
     Dates: start: 20121108

REACTIONS (4)
  - Pleural effusion [Unknown]
  - Cardiomegaly [Unknown]
  - Atelectasis [Unknown]
  - Pericardial effusion [Unknown]
